FAERS Safety Report 8302604-2 (Version None)
Quarter: 2012Q2

REPORT INFORMATION
  Report Type: 
  Country: None (occurrence: None)
  Receive Date: 20120420
  Receipt Date: 20120412
  Transmission Date: 20120825
  Serious: Yes (Other)
  Sender: FDA-Public Use
  Company Number: US-BAYER-2012-036542

PATIENT
  Age: 14 Month
  Sex: Female
  Weight: 10 kg

DRUGS (1)
  1. ASPIRIN [Suspect]
     Dosage: TOOK APPROXIMATELY 18 OR MORE TABLETS, ONCE, BOTTLE COUNT  36S
     Dates: start: 20120412, end: 20120412

REACTIONS (1)
  - NO ADVERSE EVENT [None]
